FAERS Safety Report 4388594-6 (Version None)
Quarter: 2004Q2

REPORT INFORMATION
  Report Type: 
  Country: None (occurrence: None)
  Receive Date: 20040624
  Receipt Date: 20040609
  Transmission Date: 20050107
  Serious: No
  Sender: FDA-Public Use
  Company Number: B0335203A

PATIENT
  Age: 50 Year
  Sex: Female

DRUGS (4)
  1. EPIVIR [Suspect]
     Indication: HIV INFECTION
  2. STAVUDINE (STAVUDINE) [Suspect]
     Indication: HIV INFECTION
  3. EFAVIRENZ (EFAVIRENZ) [Suspect]
  4. ENALAPRIL MALEATE [Concomitant]

REACTIONS (7)
  - BLOOD CHOLESTEROL INCREASED [None]
  - BLOOD TRIGLYCERIDES INCREASED [None]
  - DIABETES MELLITUS [None]
  - HEPATIC STEATOSIS [None]
  - HYPERTENSION [None]
  - LIPOMATOSIS [None]
  - WEIGHT DECREASED [None]
